FAERS Safety Report 25159162 (Version 1)
Quarter: 2025Q2

REPORT INFORMATION
  Report Type: Spontaneous
  Country: US (occurrence: None)
  Receive Date: 20250404
  Receipt Date: 20250404
  Transmission Date: 20250717
  Serious: Yes (Hospitalization)
  Sender: INFORLIFE
  Company Number: US-INFO-20250061

PATIENT
  Age: 50 Year
  Sex: Female

DRUGS (6)
  1. ZOLEDRONIC ACID [Suspect]
     Active Substance: ZOLEDRONIC ACID
     Indication: Osteoporosis
     Route: 040
  2. ANASTROZOLE [Concomitant]
     Active Substance: ANASTROZOLE
     Indication: Invasive ductal breast carcinoma
  3. ABEMACICLIB [Concomitant]
     Active Substance: ABEMACICLIB
     Indication: Invasive ductal breast carcinoma
  4. VITAMIN D3 [Concomitant]
     Active Substance: CHOLECALCIFEROL
  5. GABAPENTIN [Concomitant]
     Active Substance: GABAPENTIN
  6. SENNOSIDES [Concomitant]
     Active Substance: SENNOSIDES

REACTIONS (1)
  - Drug-induced liver injury [Recovered/Resolved]
